FAERS Safety Report 10366210 (Version 4)
Quarter: 2014Q4

REPORT INFORMATION
  Report Type: Spontaneous
  Country: GB (occurrence: GB)
  Receive Date: 20140806
  Receipt Date: 20141230
  Transmission Date: 20150528
  Serious: Yes (Death, Hospitalization, Other)
  Sender: FDA-Public Use
  Company Number: GB-TEVA-498000ISR

PATIENT
  Age: 68 Year
  Sex: Male

DRUGS (8)
  1. AMITRIPTYLINE [Suspect]
     Active Substance: AMITRIPTYLINE
     Indication: PRODUCT USED FOR UNKNOWN INDICATION
  2. FLUOROURACIL. [Interacting]
     Active Substance: FLUOROURACIL
     Indication: PRODUCT USED FOR UNKNOWN INDICATION
     Dates: start: 20100531, end: 20140319
  3. OMEPRAZOLE. [Interacting]
     Active Substance: OMEPRAZOLE
     Indication: PRODUCT USED FOR UNKNOWN INDICATION
  4. BUPRENORPHINE [Interacting]
     Active Substance: BUPRENORPHINE
     Indication: PRODUCT USED FOR UNKNOWN INDICATION
  5. FRESENIUS KABI OXALIPLATIN [Interacting]
     Active Substance: OXALIPLATIN
     Indication: RECTAL CANCER
     Dosage: OXALIPLATIN 100MG/20ML; DOSAGE OF 114 MG OF 14/14 DAYS.
  6. PREGABALIN. [Interacting]
     Active Substance: PREGABALIN
     Indication: PRODUCT USED FOR UNKNOWN INDICATION
  7. PREDNISOLONE. [Interacting]
     Active Substance: PREDNISOLONE
     Indication: PRODUCT USED FOR UNKNOWN INDICATION
  8. CALCIUM FOLINATE [Interacting]
     Active Substance: LEUCOVORIN CALCIUM
     Indication: PRODUCT USED FOR UNKNOWN INDICATION
     Dates: start: 20130918, end: 20140319

REACTIONS (5)
  - Pneumonitis [Fatal]
  - Drug interaction [Unknown]
  - Pain [Unknown]
  - Acute respiratory distress syndrome [Fatal]
  - Subileus [Unknown]

NARRATIVE: CASE EVENT DATE: 20140626
